FAERS Safety Report 17043887 (Version 1)
Quarter: 2019Q4

REPORT INFORMATION
  Report Type: Spontaneous
  Country: US (occurrence: US)
  Receive Date: 20191017
  Receipt Date: 20191017
  Transmission Date: 20200122
  Serious: Yes (Hospitalization)
  Sender: FDA-Public Use
  Company Number: None

PATIENT
  Age: 66 Year
  Sex: Female
  Weight: 134 kg

DRUGS (1)
  1. ASPIRIN. [Suspect]
     Active Substance: ASPIRIN
     Dates: end: 20191015

REACTIONS (8)
  - Vision blurred [None]
  - White blood cell count increased [None]
  - Malaise [None]
  - Hypotension [None]
  - Asthenia [None]
  - Productive cough [None]
  - Arthralgia [None]
  - Bacterial test [None]

NARRATIVE: CASE EVENT DATE: 20191015
